FAERS Safety Report 17429408 (Version 2)
Quarter: 2020Q1

REPORT INFORMATION
  Report Type: Spontaneous
  Country: US (occurrence: US)
  Receive Date: 20200218
  Receipt Date: 20200218
  Transmission Date: 20200409
  Serious: Yes (Death)
  Sender: FDA-Public Use
  Company Number: US-PFIZER INC-2020059522

PATIENT
  Sex: Male

DRUGS (1)
  1. BENZATHINE BENZYLPENICILLIN [Suspect]
     Active Substance: PENICILLIN G BENZATHINE
     Dosage: UNK (INJECTION, SUSPENSION)
     Route: 042
     Dates: start: 1997

REACTIONS (2)
  - Incorrect route of product administration [Fatal]
  - Death neonatal [Fatal]

NARRATIVE: CASE EVENT DATE: 1997
